FAERS Safety Report 5635325-5 (Version None)
Quarter: 2008Q1

REPORT INFORMATION
  Report Type: 
  Country: None (occurrence: None)
  Receive Date: 20080222
  Receipt Date: 20080212
  Transmission Date: 20080703
  Serious: Yes (Disabling, Other)
  Sender: FDA-Public Use
  Company Number: US-PFIZER INC-2008004225

PATIENT
  Sex: Female
  Weight: 79.4 kg

DRUGS (10)
  1. ZYVOX [Suspect]
     Indication: LOCALISED INFECTION
     Route: 048
     Dates: start: 20071129, end: 20080112
  2. ZYVOX [Suspect]
     Indication: OSTEOMYELITIS
  3. ZYVOX [Suspect]
     Indication: CELLULITIS
  4. LYRICA [Suspect]
     Indication: NEUROPATHY PERIPHERAL
     Route: 048
  5. LYRICA [Suspect]
     Indication: DIABETIC NEUROPATHY
  6. WELLBUTRIN [Concomitant]
  7. XANAX [Concomitant]
  8. LORTAB [Concomitant]
  9. SOMA [Concomitant]
     Indication: FIBROMYALGIA
  10. LASIX [Concomitant]

REACTIONS (7)
  - HEADACHE [None]
  - HOT FLUSH [None]
  - HYPOAESTHESIA [None]
  - NEURALGIA [None]
  - PARAESTHESIA [None]
  - SLEEP DISORDER [None]
  - TOE OPERATION [None]
